FAERS Safety Report 6082387-X (Version None)
Quarter: 2009Q1

REPORT INFORMATION
  Report Type: 
  Country: None (occurrence: None)
  Receive Date: 20090130
  Receipt Date: 20080324
  Transmission Date: 20090719
  Serious: No
  Sender: FDA-Public Use
  Company Number: 8028475

PATIENT
  Sex: Female

DRUGS (9)
  1. KEPPRA [Suspect]
     Indication: LOSS OF CONSCIOUSNESS
     Dosage: 250 MG 2/D
     Dates: start: 20071203, end: 20071205
  2. KEPPRA [Suspect]
     Indication: LOSS OF CONSCIOUSNESS
     Dosage: 500 MG 2/D PO
     Route: 048
  3. THYROID MEDICATION [Concomitant]
  4. CHLORDIAZEPOXIDE [Concomitant]
  5. FLUOXETINE [Concomitant]
  6. PROVIGIL [Concomitant]
  7. OXYCODONE HCL [Concomitant]
  8. BACLOFEN [Concomitant]
  9. CLONAZEPAM [Concomitant]

REACTIONS (4)
  - ABDOMINAL PAIN UPPER [None]
  - BLOOD PRESSURE INCREASED [None]
  - FATIGUE [None]
  - HEADACHE [None]
